FAERS Safety Report 11862303 (Version 1)
Quarter: 2015Q4

REPORT INFORMATION
  Report Type: Spontaneous
  Country: US (occurrence: None)
  Receive Date: 20151222
  Receipt Date: 20151222
  Transmission Date: 20160305
  Serious: Yes (Other)
  Sender: FDA-Public Use
  Company Number: None

PATIENT
  Age: 43 Year
  Sex: Female
  Weight: 125.19 kg

DRUGS (1)
  1. BELVIQ [Suspect]
     Active Substance: LORCASERIN HYDROCHLORIDE
     Indication: WEIGHT DECREASED
     Route: 048
     Dates: start: 20151109, end: 20151116

REACTIONS (6)
  - Myalgia [None]
  - Pulse abnormal [None]
  - Dizziness [None]
  - Arthralgia [None]
  - Blood pressure decreased [None]
  - Confusional state [None]

NARRATIVE: CASE EVENT DATE: 20151110
